FAERS Safety Report 7149179-1 (Version None)
Quarter: 2010Q4

REPORT INFORMATION
  Report Type: 
  Country: None (occurrence: None)
  Receive Date: 20101209
  Receipt Date: 20101202
  Transmission Date: 20110411
  Serious: Yes (Other)
  Sender: FDA-Public Use
  Company Number: NL-AMGEN-QUU433597

PATIENT

DRUGS (7)
  1. NEULASTA [Suspect]
     Indication: CHEMOTHERAPY
     Dosage: 6 MG, Q3WK
     Route: 058
     Dates: start: 20100724
  2. NEULASTA [Suspect]
     Dosage: 6 A?G, UNK
     Route: 065
     Dates: start: 20100714
  3. DEXAMETHASONE [Concomitant]
  4. 5-FU                               /00098801/ [Concomitant]
     Dosage: UNK UNK, Q3WK
     Dates: start: 20100723, end: 20101001
  5. EPIRUBICIN [Concomitant]
     Dosage: UNK UNK, Q3WK
     Dates: start: 20100723, end: 20101001
  6. CYCLOPHOSPHAMIDE [Concomitant]
     Dosage: UNK UNK, Q3WK
     Dates: start: 20100723, end: 20101001
  7. CYANOCOBALAMIN [Concomitant]
     Dosage: UNK UNK, BID
     Route: 048
     Dates: start: 20100724

REACTIONS (2)
  - SHOCK [None]
  - SYNCOPE [None]
